FAERS Safety Report 23775469 (Version 1)
Quarter: 2024Q2

REPORT INFORMATION
  Report Type: Spontaneous
  Country: US (occurrence: US)
  Receive Date: 20240423
  Receipt Date: 20240423
  Transmission Date: 20240716
  Serious: No
  Sender: FDA-Public Use
  Company Number: US-FMCRTG-FMC-2403-000328

PATIENT
  Sex: Male

DRUGS (1)
  1. DELFLEX [Suspect]
     Active Substance: CALCIUM CHLORIDE\DEXTROSE\MAGNESIUM CHLORIDE\SODIUM CHLORIDE\SODIUM LACTATE
     Indication: End stage renal disease
     Dosage: FILLS = 7; FILL VOLUME = 2300ML1HR 2MINS ML; LAST FILL VOLUME =1000MLML; TOTAL VOLUME = 14800ML ML;
     Route: 033

REACTIONS (1)
  - Malaise [Unknown]
